FAERS Safety Report 8504921-X (Version None)
Quarter: 2012Q3

REPORT INFORMATION
  Report Type: 
  Country: None (occurrence: None)
  Receive Date: 20120712
  Receipt Date: 20120705
  Transmission Date: 20120928
  Serious: Yes (Hospitalization, Other)
  Sender: FDA-Public Use
  Company Number: PHHY2012BR049912

PATIENT
  Age: 79 Year
  Sex: Female

DRUGS (8)
  1. DIOVAN [Suspect]
     Indication: HYPERTENSION
     Dosage: ONE TABLET (160MG) IN THE MORNING AND ONE TABLET (160MG) AT NIGHT
     Dates: start: 20050101
  2. DIOVAN HCT [Suspect]
     Dosage: 1 DF, UNK
  3. OLCADIL [Concomitant]
     Dosage: 1 DF, QD
     Route: 048
  4. OMEPRAZOLE [Concomitant]
     Indication: GASTRITIS
     Dosage: 1 DF, (FASTING) QD
     Route: 048
  5. SIMVASTATIN [Concomitant]
     Indication: BLOOD CHOLESTEROL ABNORMAL
     Dosage: 1 DF, QD
     Route: 048
  6. ENALAPRIL MALEATE [Concomitant]
     Indication: HYPERTENSION
     Dosage: 1 DF, (AFTER LUNCH AND AT NIGHT) BID
     Route: 048
  7. ASPIRIN [Concomitant]
     Dosage: 1 DF, QD
     Route: 048
  8. AMLODIPINE BESYLATE [Concomitant]
     Indication: HYPERTENSION
     Dosage: 1 DF, (AT NIGHT) QD
     Route: 048

REACTIONS (13)
  - GLAUCOMA [None]
  - CORNEAL LESION [None]
  - PYREXIA [None]
  - VOMITING [None]
  - EYE PAIN [None]
  - DIARRHOEA [None]
  - EYE MOVEMENT DISORDER [None]
  - DRUG DISPENSING ERROR [None]
  - BLOOD PRESSURE INCREASED [None]
  - ABNORMAL SENSATION IN EYE [None]
  - DRUG INEFFECTIVE [None]
  - MALAISE [None]
  - DRUG HYPERSENSITIVITY [None]
